FAERS Safety Report 8604794-0 (Version None)
Quarter: 2012Q3

REPORT INFORMATION
  Report Type: 
  Country: None (occurrence: None)
  Receive Date: 20120820
  Receipt Date: 20120809
  Transmission Date: 20120928
  Serious: Yes (Hospitalization)
  Sender: FDA-Public Use
  Company Number: JP-ELI_LILLY_AND_COMPANY-JP201112003098

PATIENT
  Age: 75 Year
  Sex: Female

DRUGS (4)
  1. FORTEO [Suspect]
     Route: 058
  2. FORTEO [Suspect]
     Dosage: UNK
     Route: 058
  3. FORTEO [Suspect]
     Route: 058
  4. FORTEO [Suspect]
     Dosage: UNK
     Route: 058
     Dates: start: 20111130

REACTIONS (3)
  - HOSPITALISATION [None]
  - ASTHENIA [None]
  - CARDIAC OPERATION [None]
